FAERS Safety Report 7810809-X (Version None)
Quarter: 2011Q4

REPORT INFORMATION
  Report Type: 
  Country: None (occurrence: None)
  Receive Date: 20111012
  Receipt Date: 20111012
  Transmission Date: 20120403
  Serious: Yes (Life-Threatening)
  Sender: FDA-Public Use
  Company Number: None

PATIENT
  Sex: Female
  Weight: 9.3 kg

DRUGS (1)
  1. LEVETIRACETAM [Suspect]
     Indication: CONVULSION
     Dosage: 5 CC BID P.O.
     Route: 048
     Dates: start: 20100901, end: 20110901

REACTIONS (3)
  - PRODUCT SUBSTITUTION ISSUE [None]
  - CONVULSION [None]
  - GASTROINTESTINAL DISORDER [None]
